FAERS Safety Report 4373119-1 (Version None)
Quarter: 2004Q2

REPORT INFORMATION
  Report Type: 
  Country: None (occurrence: None)
  Receive Date: 20040608
  Receipt Date: 20040504
  Transmission Date: 20050107
  Serious: Yes (Hospitalization, Other)
  Sender: FDA-Public Use
  Company Number: PHRM2004FR01746

PATIENT
  Age: 72 Year
  Sex: Female
  Weight: 54 kg

DRUGS (6)
  1. TRILEPTAL [Suspect]
     Indication: STATUS EPILEPTICUS
     Dosage: 450 MG, BID
     Route: 048
     Dates: start: 20040301, end: 20040322
  2. DI-HYDAN [Suspect]
     Indication: STATUS EPILEPTICUS
     Dosage: 100 MG, BID
     Dates: start: 20040301
  3. URBANYL [Concomitant]
     Indication: STATUS EPILEPTICUS
     Dosage: 5 MG, TID
     Dates: start: 20040301, end: 20040325
  4. KEAL [Concomitant]
     Indication: GASTRIC ULCER
     Dosage: 2 G, BID
     Dates: start: 20040301, end: 20040304
  5. MOPRAL [Concomitant]
     Dosage: 20 MG DAILY
     Route: 048
     Dates: start: 20040304
  6. ROCEPHIN [Concomitant]
     Dosage: 2 G, BID
     Dates: start: 20040304, end: 20040311

REACTIONS (5)
  - CYTOLYTIC HEPATITIS [None]
  - HEPATIC ENZYME INCREASED [None]
  - HYPONATRAEMIA [None]
  - LEUKOPENIA [None]
  - NEUTROPENIA [None]
